FAERS Safety Report 5217072-7 (Version None)
Quarter: 2007Q1

REPORT INFORMATION
  Report Type: 
  Country: None (occurrence: None)
  Receive Date: 20070124
  Receipt Date: 20070111
  Transmission Date: 20070707
  Serious: Yes (Other)
  Sender: FDA-Public Use
  Company Number: CA-ELI_LILLY_AND_COMPANY-CA200701003930

PATIENT
  Age: 42 Year
  Sex: Female

DRUGS (8)
  1. FORTEO [Suspect]
     Indication: OSTEOPOROSIS
     Dosage: 20 UG, DAILY (1/D)
     Route: 058
     Dates: start: 20051229
  2. ENBREL [Concomitant]
  3. TOPIRAMATE [Concomitant]
  4. HYDROMORPH CONTIN [Concomitant]
  5. METHOTREXATE [Concomitant]
  6. OMEPRAZOLE [Concomitant]
  7. MONOPRIL [Concomitant]
  8. TRIPHASIL-28 [Concomitant]

REACTIONS (2)
  - CONVULSION [None]
  - UPPER LIMB FRACTURE [None]
